FAERS Safety Report 10504337 (Version 1)
Quarter: 2014Q4

REPORT INFORMATION
  Report Type: Report from Study
  Country: KR (occurrence: KR)
  Receive Date: 20141008
  Receipt Date: 20141008
  Transmission Date: 20150528
  Serious: Yes (Death, Other)
  Sender: FDA-Public Use
  Company Number: KR-ABBVIE-14P-090-1292476-00

PATIENT
  Sex: Male

DRUGS (2)
  1. KALETRA [Suspect]
     Active Substance: LOPINAVIR\RITONAVIR
     Indication: HIV INFECTION
     Dosage: 200/50
     Route: 051
     Dates: start: 20140425, end: 20140827
  2. LAMIVUDINE AND ZIDOVUDINE [Concomitant]
     Active Substance: LAMIVUDINE\ZIDOVUDINE
     Indication: HIV INFECTION
     Route: 048
     Dates: start: 20140426, end: 20140827

REACTIONS (2)
  - Pleural effusion [Not Recovered/Not Resolved]
  - Kaposi^s sarcoma [Fatal]

NARRATIVE: CASE EVENT DATE: 20140425
